FAERS Safety Report 10508673 (Version 2)
Quarter: 2014Q4

REPORT INFORMATION
  Report Type: Spontaneous
  Country: IL (occurrence: IL)
  Receive Date: 20141009
  Receipt Date: 20141016
  Transmission Date: 20150528
  Serious: Yes (Other)
  Sender: FDA-Public Use
  Company Number: IL-BRISTOL-MYERS SQUIBB COMPANY-21460126

PATIENT
  Age: 61 Year
  Sex: Male

DRUGS (4)
  1. ALDACTONE [Concomitant]
     Active Substance: SPIRONOLACTONE
  2. CARDILOL [Concomitant]
     Active Substance: CARVEDILOL
  3. LYRICA [Concomitant]
     Active Substance: PREGABALIN
  4. BARACLUDE [Suspect]
     Active Substance: ENTECAVIR
     Indication: HEPATITIS B
     Route: 048
     Dates: start: 201406

REACTIONS (1)
  - Peripheral sensorimotor neuropathy [Unknown]

NARRATIVE: CASE EVENT DATE: 201406
